FAERS Safety Report 9368960 (Version 2)
Quarter: 2013Q2

REPORT INFORMATION
  Report Type: Spontaneous
  Country: ES (occurrence: None)
  Receive Date: 20130621
  Receipt Date: 20130628
  Transmission Date: 20140414
  Serious: Yes (Death, Hospitalization, Other)
  Sender: FDA-Public Use
  Company Number: AUR-APL-2013-05060

PATIENT
  Age: 24 Year
  Sex: Male

DRUGS (4)
  1. METFORMIN (METFORMIN) [Suspect]
     Indication: PRODUCT USED FOR UNKNOWN INDICATION
  2. OMEPRAZOLE (OMEPRAZOLE) [Suspect]
     Indication: PRODUCT USED FOR UNKNOWN INDICATION
  3. IBUPROFEN (IBUPROFEN) [Suspect]
     Indication: PRODUCT USED FOR UNKNOWN INDICATION
  4. PARACETAMOL [Suspect]
     Indication: PRODUCT USED FOR UNKNOWN INDICATION
     Dosage: 28/1.75 GRAM (2.6 GM), UNK

REACTIONS (26)
  - Completed suicide [None]
  - Lactic acidosis [None]
  - Rhabdomyolysis [None]
  - Renal failure [None]
  - Hypernatraemia [None]
  - Dialysis [None]
  - Bradycardia [None]
  - Aspiration bronchial [None]
  - Fluid overload [None]
  - Haemodynamic instability [None]
  - Psychomotor hyperactivity [None]
  - Blood glucose decreased [None]
  - Toxicity to various agents [None]
  - Cardio-respiratory arrest [None]
  - Hypothermia [None]
  - Pericardial effusion [None]
  - Pleural effusion [None]
  - Vomiting [None]
  - Neurological decompensation [None]
  - Electrocardiogram QRS complex prolonged [None]
  - Cardiac disorder [None]
  - Endotracheal intubation complication [None]
  - Intentional overdose [None]
  - Blood creatine phosphokinase increased [None]
  - Myoglobin blood increased [None]
  - Troponin T increased [None]
